FAERS Safety Report 11031292 (Version 2)
Quarter: 2015Q2

REPORT INFORMATION
  Report Type: Spontaneous
  Country: US (occurrence: US)
  Receive Date: 20150415
  Receipt Date: 20150415
  Transmission Date: 20150821
  Serious: No
  Sender: FDA-Public Use
  Company Number: US-PFIZER INC-2015122627

PATIENT
  Age: 45 Year
  Sex: Male
  Weight: 118 kg

DRUGS (2)
  1. ASPIRIN. [Suspect]
     Active Substance: ASPIRIN
     Dosage: UNK
  2. LIPITOR [Suspect]
     Active Substance: ATORVASTATIN CALCIUM
     Indication: BLOOD CHOLESTEROL ABNORMAL
     Dosage: 10 MG, 1X/DAY (ONCE BEFORE BED TIME)
     Route: 048
     Dates: start: 201503, end: 201503

REACTIONS (4)
  - Dyspnoea [Unknown]
  - Nasal congestion [Unknown]
  - Respiratory tract congestion [Unknown]
  - Drug hypersensitivity [Unknown]
